FAERS Safety Report 20744562 (Version 1)
Quarter: 2022Q2

REPORT INFORMATION
  Report Type: Spontaneous
  Country: US (occurrence: None)
  Receive Date: 20220422
  Receipt Date: 20220422
  Transmission Date: 20220721
  Serious: Yes (Disabling)
  Sender: FDA-Public Use
  Company Number: None

PATIENT
  Age: 42 Year
  Sex: Female
  Weight: 81 kg

DRUGS (6)
  1. BUPRENORPHINE\NALOXONE [Suspect]
     Active Substance: BUPRENORPHINE\NALOXONE
     Indication: Product used for unknown indication
     Dates: start: 20181101
  2. BUPROPION [Concomitant]
     Active Substance: BUPROPION
  3. PROPANOL (PROPRANOLOL HYDROCHLORIDE) [Concomitant]
     Active Substance: PROPRANOLOL HYDROCHLORIDE
  4. HYDROXYZINE [Concomitant]
     Active Substance: HYDROXYZINE HYDROCHLORIDE
  5. CLONAZEPAM [Concomitant]
     Active Substance: CLONAZEPAM
  6. dextro amphetamine [Concomitant]

REACTIONS (6)
  - Dental caries [None]
  - Gingival disorder [None]
  - Dental caries [None]
  - Dental restoration failure [None]
  - Tooth injury [None]
  - Unevaluable event [None]

NARRATIVE: CASE EVENT DATE: 20181101
